FAERS Safety Report 5664302-3 (Version None)
Quarter: 2008Q1

REPORT INFORMATION
  Report Type: 
  Country: None (occurrence: None)
  Receive Date: 20080312
  Receipt Date: 20080228
  Transmission Date: 20080703
  Serious: Yes (Death, Hospitalization)
  Sender: FDA-Public Use
  Company Number: CLOF-10458

PATIENT
  Age: 73 Year
  Sex: Female
  Weight: 56.6 kg

DRUGS (6)
  1. CLOFARABINE (CLOFARABINE) [Suspect]
     Indication: ACUTE MYELOID LEUKAEMIA
     Dosage: 50 MG, QDX5, INTRAVENOUS
     Route: 042
     Dates: start: 20070212, end: 20070216
  2. INSULIN (INSULIN) [Concomitant]
  3. ZYPREXA [Concomitant]
  4. MAGNESIUM SULFATE [Concomitant]
  5. SODIUM CHLORIDE 0.9% [Concomitant]
  6. POTASSIUM CHLORIDE (POTASSIUM CHLORIDE, SODIUM CHLORIDE) [Concomitant]

REACTIONS (27)
  - ABDOMINAL PAIN [None]
  - ASCITES [None]
  - ATELECTASIS [None]
  - ATRIAL FIBRILLATION [None]
  - CHOLECYSTITIS [None]
  - CULTURE POSITIVE [None]
  - DEPRESSED LEVEL OF CONSCIOUSNESS [None]
  - FEBRILE NEUTROPENIA [None]
  - FUNGUS SPUTUM TEST POSITIVE [None]
  - GALLBLADDER NECROSIS [None]
  - GENERALISED OEDEMA [None]
  - HERPES SIMPLEX [None]
  - ILEUS PARALYTIC [None]
  - LOBAR PNEUMONIA [None]
  - LUNG CONSOLIDATION [None]
  - MALNUTRITION [None]
  - MYELODYSPLASTIC SYNDROME [None]
  - PLEURAL EFFUSION [None]
  - PULMONARY OEDEMA [None]
  - RENAL FAILURE [None]
  - RENAL FAILURE ACUTE [None]
  - RENAL IMPAIRMENT [None]
  - RESPIRATORY DISTRESS [None]
  - RESPIRATORY FAILURE [None]
  - SOMNOLENCE [None]
  - SPUTUM CULTURE POSITIVE [None]
  - TREATMENT NONCOMPLIANCE [None]
